FAERS Safety Report 8849611 (Version 1)
Quarter: 2012Q4

REPORT INFORMATION
  Report Type: Report from Study
  Country: DE (occurrence: DE)
  Receive Date: 20121019
  Receipt Date: 20121019
  Transmission Date: 20130627
  Serious: Yes (Hospitalization)
  Sender: FDA-Public Use
  Company Number: DE-TEVA-364496GER

PATIENT
  Sex: Male

DRUGS (8)
  1. DOXORUBICIN [Suspect]
     Indication: B-CELL LYMPHOMA
     Dosage: 110 Milligram Daily;
     Route: 042
     Dates: start: 20120503, end: 20120503
  2. LIPOSOMAL DOXORUBICIN [Suspect]
     Indication: B-CELL LYMPHOMA
     Dosage: 110 Milligram Daily;
     Route: 042
     Dates: start: 20120503, end: 20120503
  3. PREDNISONE [Suspect]
     Indication: B-CELL LYMPHOMA
     Dosage: 100 Milligram Daily;
     Route: 048
     Dates: start: 20120504, end: 20120505
  4. VINCRISTINE [Suspect]
     Indication: B-CELL LYMPHOMA
     Dosage: 2 Milligram Daily;
     Route: 042
     Dates: start: 20120503, end: 20120503
  5. RITUXIMAB [Suspect]
     Indication: B-CELL LYMPHOMA
     Dosage: 800 Milligram Daily;
     Route: 042
     Dates: start: 20120627
  6. CYCLOPHOSPHAMIDE [Suspect]
     Indication: B-CELL LYMPHOMA
     Dosage: 1600 Milligram Daily;
     Route: 042
     Dates: start: 20120503, end: 20120503
  7. LEVOTHYROXINE [Concomitant]
     Indication: THYROID HORMONE REPLACEMENT THERAPY
     Route: 048
  8. CANDESARTAN CILEXETIL [Concomitant]
     Indication: HYPERTONIA
     Dosage: 8 Milligram Daily;
     Route: 048

REACTIONS (2)
  - Diverticulitis [Not Recovered/Not Resolved]
  - Diverticular perforation [Recovered/Resolved]
